FAERS Safety Report 10404158 (Version 1)
Quarter: 2014Q1

REPORT INFORMATION
  Report Type: Spontaneous
  Country: US (occurrence: None)
  Receive Date: 20130916
  Receipt Date: 20130916
  Transmission Date: 20141002
  Serious: Yes (Other)
  Sender: FDA-Public Use
  Company Number: JPI-P-025998

PATIENT
  Age: 31 Year
  Sex: Male

DRUGS (5)
  1. XYREM (500 MILLIGRAM/MILLILITERS, SOLUTION) (SODIUM OXYBATE) [Suspect]
     Indication: CATAPLEXY
     Route: 048
     Dates: start: 20040115
  2. GABAPENTIN [Concomitant]
  3. ARMODAFINIL [Concomitant]
  4. ESCITALOPRAM OXALATE [Concomitant]
  5. AMPHETAMINE, DEXTROAMPHETAMINE MIXED SALTS [Concomitant]

REACTIONS (3)
  - Sleep apnoea syndrome [None]
  - Snoring [None]
  - Oxygen saturation decreased [None]
